FAERS Safety Report 5984249-2 (Version None)
Quarter: 2008Q4

REPORT INFORMATION
  Report Type: 
  Country: None (occurrence: None)
  Receive Date: 20081205
  Receipt Date: 20081205
  Transmission Date: 20090506
  Serious: Yes (Other)
  Sender: FDA-Public Use
  Company Number: None

PATIENT
  Sex: Female
  Weight: 40.8237 kg

DRUGS (2)
  1. FENTANYL [Suspect]
     Indication: ABDOMINAL PAIN
     Dosage: 50MCG/HR -2 PATCHES- EVERY 72 HOURS TRANSDERMAL
     Route: 062
     Dates: start: 20081201, end: 20081203
  2. FENTANYL [Suspect]
     Indication: PAIN
     Dosage: 50MCG/HR -2 PATCHES- EVERY 72 HOURS TRANSDERMAL
     Route: 062
     Dates: start: 20081201, end: 20081203

REACTIONS (3)
  - DRUG INEFFECTIVE [None]
  - DRUG PRESCRIBING ERROR [None]
  - MEDICATION ERROR [None]
